FAERS Safety Report 8396594-4 (Version None)
Quarter: 2012Q1

REPORT INFORMATION
  Report Type: 
  Country: None (occurrence: None)
  Receive Date: 20120323
  Receipt Date: 20110712
  Transmission Date: 20120608
  Serious: Yes (Hospitalization)
  Sender: FDA-Public Use
  Company Number: 163-21880-11042098

PATIENT
  Age: 62 Year
  Sex: Female

DRUGS (10)
  1. IGG (IMMUNOGLOBULIN) [Concomitant]
  2. DEXAMETHASONE [Concomitant]
  3. TOPROL-XL [Concomitant]
  4. MAGNESIUM OXIDE (MAGNESIUM OXIDE) [Concomitant]
  5. ATIVAN [Concomitant]
  6. REVLIMID [Suspect]
     Indication: MULTIPLE MYELOMA
     Dosage: 25 MG, DAILY FOR 3 WEEKS THEN 1 WEEK OFF, PO
     Route: 048
     Dates: start: 20110315
  7. ZOMETA [Concomitant]
  8. DILTIAZEM [Concomitant]
  9. EXTRA STRENGTH TYLENOL [Concomitant]
  10. ASPIRIN [Concomitant]

REACTIONS (1)
  - ATRIAL FIBRILLATION [None]
